FAERS Safety Report 8608667 (Version 2)
Quarter: 2014Q1

REPORT INFORMATION
  Report Type: Spontaneous
  Country: US (occurrence: None)
  Receive Date: 20120323
  Receipt Date: 20140306
  Transmission Date: 20141002
  Serious: Yes (Hospitalization, Other)
  Sender: FDA-Public Use
  Company Number: 163-21880-11021095

PATIENT
  Age: 70 Year
  Sex: Male

DRUGS (1)
  1. REVLIMID [Suspect]
     Indication: PLASMA CELL MYELOMA
     Dosage: 25 MG, 3 X A WEEK FOR 28 DAYS, PO
     Route: 048
     Dates: start: 200812

REACTIONS (3)
  - Thrombosis [None]
  - White blood cell count decreased [None]
  - Fatigue [None]
